FAERS Safety Report 8612508-3 (Version None)
Quarter: 2012Q3

REPORT INFORMATION
  Report Type: 
  Country: None (occurrence: None)
  Receive Date: 20120822
  Receipt Date: 20120817
  Transmission Date: 20120928
  Serious: Yes (Hospitalization)
  Sender: FDA-Public Use
  Company Number: PHHY2012PK071166

PATIENT
  Age: 22 Year
  Sex: Male

DRUGS (3)
  1. DICLOFENAC SODIUM [Suspect]
     Indication: MUMPS
     Dosage: 100 MG, BID
  2. ESOMEPRAZOLE SODIUM [Concomitant]
     Dosage: 40 MG, BID
  3. CEFIXIME [Concomitant]
     Dosage: 400 MG, TID

REACTIONS (9)
  - INFLAMMATION [None]
  - PERITONITIS [None]
  - HEART RATE INCREASED [None]
  - LARGE INTESTINE PERFORATION [None]
  - CONSTIPATION [None]
  - VOMITING [None]
  - PYREXIA [None]
  - ABDOMINAL PAIN [None]
  - RESPIRATORY RATE INCREASED [None]
